FAERS Safety Report 6588191-8 (Version None)
Quarter: 2010Q1

REPORT INFORMATION
  Report Type: 
  Country: None (occurrence: None)
  Receive Date: 20100218
  Receipt Date: 20100208
  Transmission Date: 20100710
  Serious: Yes (Hospitalization, Other)
  Sender: FDA-Public Use
  Company Number: DK-BAYER-200933130GPV

PATIENT
  Age: 31 Year
  Sex: Female

DRUGS (5)
  1. YASMIN [Suspect]
     Indication: OVARIAN CYST
     Dates: start: 20070724
  2. PERGOTIME [Suspect]
     Indication: INFERTILITY
     Dates: start: 20070911, end: 20070921
  3. PERGOTIME [Suspect]
     Dates: start: 20071016, end: 20071020
  4. PREGNYL [Concomitant]
     Indication: DRUG USE FOR UNKNOWN INDICATION
  5. PRIMCILLIN [Concomitant]
     Indication: DRUG USE FOR UNKNOWN INDICATION
     Dates: start: 20071001, end: 20071001

REACTIONS (2)
  - COR PULMONALE ACUTE [None]
  - PULMONARY EMBOLISM [None]
